FAERS Safety Report 16804805 (Version 7)
Quarter: 2022Q2

REPORT INFORMATION
  Report Type: Report from Study
  Country: US (occurrence: None)
  Receive Date: 20190913
  Receipt Date: 20220531
  Transmission Date: 20220721
  Serious: Yes (Hospitalization)
  Sender: FDA-Public Use
  Company Number: US-ROCHE-2402986

PATIENT
  Age: 66 Year
  Sex: Male
  Weight: 89.4 kg

DRUGS (2)
  1. VENETOCLAX [Suspect]
     Active Substance: VENETOCLAX
     Indication: Mantle cell lymphoma
     Dosage: LAST DOSE ADMINISTERED ON 31/AUG/2019
     Route: 048
     Dates: start: 20190730, end: 20191123
  2. IBRUTINIB [Suspect]
     Active Substance: IBRUTINIB
     Indication: Mantle cell lymphoma
     Dosage: LAST DOSE ADMINISTERED ON 02/SEP/2019
     Route: 065

REACTIONS (8)
  - Abdominal pain [Recovered/Resolved]
  - Nausea [Recovering/Resolving]
  - Dystonia [Recovered/Resolved]
  - Dyskinesia [Unknown]
  - Vomiting [Recovering/Resolving]
  - Mucosal disorder [Unknown]
  - Diarrhoea [Recovered/Resolved]
  - Abdominal pain [Recovered/Resolved]

NARRATIVE: CASE EVENT DATE: 20190830
